FAERS Safety Report 4790897-8 (Version None)
Quarter: 2005Q3

REPORT INFORMATION
  Report Type: 
  Country: None (occurrence: None)
  Receive Date: 20050914
  Receipt Date: 20041209
  Transmission Date: 20060218
  Serious: Yes (Hospitalization)
  Sender: FDA-Public Use
  Company Number: 163-20785-04120334

PATIENT
  Age: 57 Year
  Sex: Male
  Weight: 106.5953 kg

DRUGS (7)
  1. THALOMID [Suspect]
     Indication: NON-SMALL CELL LUNG CANCER
     Dosage: 50 MG, DAILY, ORAL
     Route: 048
     Dates: start: 20041112, end: 20041201
  2. TAXOTERE [Suspect]
     Indication: NON-SMALL CELL LUNG CANCER
     Dosage: 75 MG/M2 , Q 21DAYS
     Dates: start: 20041112
  3. LIPITOR [Concomitant]
  4. ACETYLSALICYLIC ACID SRT [Concomitant]
  5. TYLENOL WITH CODEINE (PANADEINE CO) [Concomitant]
  6. WARFARIN SODIUM [Concomitant]
  7. LORAZEPAM [Concomitant]

REACTIONS (1)
  - PULMONARY EMBOLISM [None]
